FAERS Safety Report 10160717 (Version 1)
Quarter: 2014Q2

REPORT INFORMATION
  Report Type: Spontaneous
  Country: CA (occurrence: CA)
  Receive Date: 20140508
  Receipt Date: 20140508
  Transmission Date: 20141212
  Serious: Yes (Other)
  Sender: FDA-Public Use
  Company Number: PHHY2014CA053595

PATIENT
  Age: 55 Year
  Sex: Male

DRUGS (7)
  1. AMIODARONE HYDROCHLORIDE SANDOZ [Suspect]
     Dosage: 20 ML, QH
     Route: 042
  2. AMIODARONE HYDROCHLORIDE [Suspect]
  3. ASA [Concomitant]
  4. ATORVASTATIN CALCIUM [Concomitant]
  5. EFFIENT [Concomitant]
  6. METOPROLOL [Concomitant]
  7. RAMIPRIL [Concomitant]

REACTIONS (4)
  - Injection site erythema [Recovered/Resolved]
  - Injection site induration [Recovered/Resolved]
  - Injection site warmth [Recovered/Resolved]
  - Thrombophlebitis [Recovered/Resolved]
